FAERS Safety Report 9834323 (Version 1)
Quarter: 2014Q1

REPORT INFORMATION
  Report Type: Spontaneous
  Country: US (occurrence: US)
  Receive Date: 20140122
  Receipt Date: 20140122
  Transmission Date: 20141002
  Serious: No
  Sender: FDA-Public Use
  Company Number: US-B.I. PHARMACEUTICALS,INC./RIDGEFIELD-2014-BI-01778BP

PATIENT
  Age: 92 Year
  Sex: Female

DRUGS (4)
  1. TRADJENTA [Suspect]
     Indication: DIABETES MELLITUS
     Dosage: 5 MG
     Route: 048
     Dates: start: 20140109
  2. WARFARIN [Concomitant]
     Dosage: 2.5 MG
     Route: 048
  3. FUROSEMIDE [Concomitant]
     Route: 048
  4. ALLOPURINOL [Concomitant]
     Indication: GOUT
     Route: 048

REACTIONS (1)
  - Rhinorrhoea [Not Recovered/Not Resolved]
